FAERS Safety Report 13777853 (Version 1)
Quarter: 2017Q3

REPORT INFORMATION
  Report Type: Spontaneous
  Country: SI (occurrence: SI)
  Receive Date: 20170721
  Receipt Date: 20170721
  Transmission Date: 20171127
  Serious: Yes (Other)
  Sender: FDA-Public Use
  Company Number: SI-REGENERON PHARMACEUTICALS, INC.-2017-17313

PATIENT

DRUGS (5)
  1. AVASTIN [Concomitant]
     Active Substance: BEVACIZUMAB
     Dosage: LEFT EYE, 20 INJECTIONS OF AVASTIN
     Dates: start: 201602
  2. EYLEA [Suspect]
     Active Substance: AFLIBERCEPT
     Indication: PRODUCT USED FOR UNKNOWN INDICATION
     Dosage: RIGHT EYE - DOSE NOT REPORTED,TOTAL NUMBER OF INJECTIONS UNSPECIF.FREQUENCY 17.-49. INJECTION EYLEA.
     Dates: start: 201602
  3. EYLEA [Suspect]
     Active Substance: AFLIBERCEPT
     Dosage: LEFT EYE, TOTAL NUMBER OF INJECTIONS UNSPECIF.- DOSE NOT REPORTED, FREQUENCY 21.-55. INJECTION EYLEA
     Dates: start: 201602
  4. EYLEA [Suspect]
     Active Substance: AFLIBERCEPT
     Dosage: RIGHT EYE
     Dates: start: 20170526
  5. AVASTIN [Concomitant]
     Active Substance: BEVACIZUMAB
     Indication: PRODUCT USED FOR UNKNOWN INDICATION
     Dosage: RIGHT EYE, 16 INJECTIONS OF AVASTIN;
     Dates: start: 201602

REACTIONS (7)
  - Hypopyon [Unknown]
  - Conjunctival pallor [Unknown]
  - Vitreous opacities [Unknown]
  - Non-infectious endophthalmitis [Recovered/Resolved]
  - Blindness [Recovering/Resolving]
  - Vision blurred [Unknown]
  - Uveitis [Recovered/Resolved]

NARRATIVE: CASE EVENT DATE: 201705
